FAERS Safety Report 5899429-4 (Version None)
Quarter: 2008Q3

REPORT INFORMATION
  Report Type: 
  Country: None (occurrence: None)
  Receive Date: 20080924
  Receipt Date: 20080910
  Transmission Date: 20090109
  Serious: Yes (Death, Hospitalization)
  Sender: FDA-Public Use
  Company Number: 2008BI022112

PATIENT
  Age: 65 Year
  Sex: Female

DRUGS (1)
  1. AVONEX [Suspect]
     Indication: MULTIPLE SCLEROSIS
     Dosage: 30 UG;QW;IM
     Route: 030
     Dates: start: 20080130

REACTIONS (7)
  - AMYOTROPHIC LATERAL SCLEROSIS [None]
  - DEHYDRATION [None]
  - FULL BLOOD COUNT DECREASED [None]
  - HYPOPHAGIA [None]
  - KIDNEY INFECTION [None]
  - LUNG INFECTION [None]
  - LUNG NEOPLASM MALIGNANT [None]
